FAERS Safety Report 6407480-0 (Version None)
Quarter: 2009Q4

REPORT INFORMATION
  Report Type: 
  Country: None (occurrence: None)
  Receive Date: 20091020
  Receipt Date: 20091008
  Transmission Date: 20100525
  Serious: Yes (Hospitalization, Other)
  Sender: FDA-Public Use
  Company Number: US-ROCHE-661139

PATIENT
  Sex: Female
  Weight: 47.2 kg

DRUGS (4)
  1. PEG-INTERFERON ALFA 2A (RO 25-8310) [Suspect]
     Dosage: PERMANENTLY STOPPED
     Route: 058
     Dates: start: 20090202, end: 20091005
  2. RIBAVIRIN [Suspect]
     Dosage: PERMANENTLY STOPPED
     Route: 048
     Dates: start: 20090202, end: 20091007
  3. BLINDED TELAPREVIR [Suspect]
     Route: 048
     Dates: start: 20090202, end: 20090526
  4. HYDROCHLOROTHIAZIDE [Concomitant]
     Indication: HYPERTENSION
     Dates: start: 20090701

REACTIONS (3)
  - CARDIAC DISORDER [None]
  - MYOCARDIAL INFARCTION [None]
  - SYNCOPE [None]
